FAERS Safety Report 8547628-5 (Version None)
Quarter: 2012Q3

REPORT INFORMATION
  Report Type: 
  Country: None (occurrence: None)
  Receive Date: 20120727
  Receipt Date: 20120416
  Transmission Date: 20120928
  Serious: Yes (Other)
  Sender: FDA-Public Use
  Company Number: US-ASTRAZENECA-2012SE25020

PATIENT
  Sex: Female
  Weight: 63.5 kg

DRUGS (11)
  1. NEURONTIN [Concomitant]
  2. ADDERALL XR 10 [Concomitant]
  3. KLONOPIN [Concomitant]
     Dosage: PRN
  4. SEROQUEL [Suspect]
     Indication: SLEEP DISORDER
     Route: 048
  5. SEROQUEL [Suspect]
     Indication: ANXIETY
     Route: 048
  6. FEMARA [Concomitant]
     Dosage: DAILY
  7. CYMBALTA [Concomitant]
     Dosage: HS
  8. TOPAMAX [Concomitant]
  9. LAMICTAL [Concomitant]
  10. SEROQUEL [Suspect]
     Indication: BIPOLAR DISORDER
     Route: 048
  11. VALIUM [Concomitant]
     Dosage: PRN

REACTIONS (6)
  - WEIGHT INCREASED [None]
  - INTENTIONAL DRUG MISUSE [None]
  - OFF LABEL USE [None]
  - INCREASED APPETITE [None]
  - SUICIDAL BEHAVIOUR [None]
  - SOMNOLENCE [None]
